FAERS Safety Report 9440667 (Version 2)
Quarter: 2013Q3

REPORT INFORMATION
  Report Type: Report from Study
  Country: US (occurrence: US)
  Receive Date: 20130805
  Receipt Date: 20130809
  Transmission Date: 20140515
  Serious: Yes (Hospitalization)
  Sender: FDA-Public Use
  Company Number: US-ACTELION-A-NJ2013-85370

PATIENT
  Age: 75 Year
  Sex: Female

DRUGS (2)
  1. VENTAVIS [Suspect]
     Indication: PULMONARY ARTERIAL HYPERTENSION
     Dosage: 5 UNK, 4X/DAY
     Route: 055
     Dates: start: 2010
  2. COUMADIN [Concomitant]

REACTIONS (3)
  - Fall [Unknown]
  - Head injury [Unknown]
  - Syncope [Unknown]
